FAERS Safety Report 8343631-9 (Version None)
Quarter: 2012Q2

REPORT INFORMATION
  Report Type: 
  Country: None (occurrence: None)
  Receive Date: 20120508
  Receipt Date: 20100701
  Transmission Date: 20120825
  Serious: No
  Sender: FDA-Public Use
  Company Number: US-TEVA-2010003562

PATIENT
  Sex: Male
  Weight: 83.99 kg

DRUGS (6)
  1. TREANDA [Suspect]
     Indication: CHRONIC LYMPHOCYTIC LEUKAEMIA
     Route: 042
     Dates: start: 20100623, end: 20100624
  2. GAMUNEX [Concomitant]
  3. RITUXAN [Concomitant]
     Dates: start: 20100622
  4. LISINOPRIL [Concomitant]
     Dates: start: 20070101
  5. AMLODIPINE [Concomitant]
  6. CLONIDINE [Concomitant]
     Dates: start: 20070101

REACTIONS (3)
  - INFUSION SITE PAIN [None]
  - INFUSION SITE SWELLING [None]
  - PAIN [None]
